FAERS Safety Report 23944041 (Version 1)
Quarter: 2024Q2

REPORT INFORMATION
  Report Type: Spontaneous
  Country: AU (occurrence: AU)
  Receive Date: 20240606
  Receipt Date: 20240606
  Transmission Date: 20240716
  Serious: Yes (Hospitalization)
  Sender: FDA-Public Use
  Company Number: AU-GILEAD-2023-0635563

PATIENT
  Sex: Female

DRUGS (83)
  1. AZACITIDINE [Suspect]
     Active Substance: AZACITIDINE
     Indication: Acute myeloid leukaemia
     Dosage: 114 MG
     Route: 058
     Dates: start: 20230224, end: 20230224
  2. AZACITIDINE [Suspect]
     Active Substance: AZACITIDINE
     Dosage: 114 MG
     Route: 058
     Dates: start: 20230225, end: 20230225
  3. AZACITIDINE [Suspect]
     Active Substance: AZACITIDINE
     Dosage: 114 MG
     Route: 058
     Dates: start: 20230226, end: 20230226
  4. AZACITIDINE [Suspect]
     Active Substance: AZACITIDINE
     Dosage: 114 MG
     Route: 058
     Dates: start: 20230227, end: 20230227
  5. AZACITIDINE [Suspect]
     Active Substance: AZACITIDINE
     Dosage: 114 MG
     Route: 058
     Dates: start: 20230228, end: 20230228
  6. AZACITIDINE [Suspect]
     Active Substance: AZACITIDINE
     Dosage: 114 MG
     Route: 058
     Dates: start: 20230301, end: 20230301
  7. AZACITIDINE [Suspect]
     Active Substance: AZACITIDINE
     Dosage: 114 MG
     Route: 058
     Dates: start: 20230302, end: 20230302
  8. AZACITIDINE [Suspect]
     Active Substance: AZACITIDINE
     Dosage: 114 MG
     Route: 058
     Dates: start: 20230403, end: 20230403
  9. AZACITIDINE [Suspect]
     Active Substance: AZACITIDINE
     Dosage: 114 MG
     Route: 058
     Dates: start: 20230404, end: 20230404
  10. AZACITIDINE [Suspect]
     Active Substance: AZACITIDINE
     Dosage: 114 MG
     Route: 058
     Dates: start: 20230405, end: 20230405
  11. AZACITIDINE [Suspect]
     Active Substance: AZACITIDINE
     Dosage: 114 MG
     Route: 058
     Dates: start: 20230406, end: 20230406
  12. AZACITIDINE [Suspect]
     Active Substance: AZACITIDINE
     Dosage: 114 MG
     Route: 058
     Dates: start: 20230523, end: 20230523
  13. AZACITIDINE [Suspect]
     Active Substance: AZACITIDINE
     Dosage: 114 MG
     Route: 058
     Dates: start: 20230524, end: 20230524
  14. AZACITIDINE [Suspect]
     Active Substance: AZACITIDINE
     Dosage: 114 MG
     Route: 058
     Dates: start: 20230525, end: 20230525
  15. AZACITIDINE [Suspect]
     Active Substance: AZACITIDINE
     Dosage: 114 MG
     Route: 058
     Dates: start: 20230526, end: 20230526
  16. AZACITIDINE [Suspect]
     Active Substance: AZACITIDINE
     Dosage: 114 MG
     Route: 058
     Dates: start: 20230529, end: 20230529
  17. AZACITIDINE [Suspect]
     Active Substance: AZACITIDINE
     Dosage: 114 MG
     Route: 058
     Dates: start: 20230530, end: 20230530
  18. AZACITIDINE [Suspect]
     Active Substance: AZACITIDINE
     Dosage: 114 MG
     Route: 058
     Dates: start: 20230531, end: 20230531
  19. AZACITIDINE [Suspect]
     Active Substance: AZACITIDINE
     Dosage: 114 MG
     Route: 058
     Dates: start: 20230620, end: 20230620
  20. AZACITIDINE [Suspect]
     Active Substance: AZACITIDINE
     Dosage: 114 MG
     Route: 058
     Dates: start: 20230621, end: 20230621
  21. AZACITIDINE [Suspect]
     Active Substance: AZACITIDINE
     Dosage: 114 MG
     Route: 058
     Dates: start: 20230622, end: 20230622
  22. AZACITIDINE [Suspect]
     Active Substance: AZACITIDINE
     Dosage: 114 MG
     Route: 058
     Dates: start: 20230623, end: 20230623
  23. AZACITIDINE [Suspect]
     Active Substance: AZACITIDINE
     Dosage: 114 MG
     Route: 058
     Dates: start: 20230626, end: 20230626
  24. AZACITIDINE [Suspect]
     Active Substance: AZACITIDINE
     Dosage: 114 MG
     Route: 058
     Dates: start: 20230627, end: 20230627
  25. AZACITIDINE [Suspect]
     Active Substance: AZACITIDINE
     Dosage: 114 MG
     Route: 058
     Dates: start: 20230628, end: 20230628
  26. AZACITIDINE [Suspect]
     Active Substance: AZACITIDINE
     Dosage: 114 MG
     Route: 058
     Dates: start: 20230814, end: 20230815
  27. AZACITIDINE [Suspect]
     Active Substance: AZACITIDINE
     Dosage: 55 MG
     Route: 058
     Dates: start: 20230807, end: 20230812
  28. CIPROFLOXACIN [Suspect]
     Active Substance: CIPROFLOXACIN
     Indication: Product used for unknown indication
     Route: 065
  29. MAGROLIMAB [Suspect]
     Active Substance: MAGROLIMAB
     Dosage: 1389 MG
     Route: 042
     Dates: start: 20230814, end: 20230828
  30. MAGROLIMAB [Suspect]
     Active Substance: MAGROLIMAB
     Dosage: 1550 MG
     Route: 042
     Dates: start: 20230306, end: 20230306
  31. MAGROLIMAB [Suspect]
     Active Substance: MAGROLIMAB
     Dosage: 1550 MG
     Route: 042
     Dates: start: 20230310, end: 20230310
  32. MAGROLIMAB [Suspect]
     Active Substance: MAGROLIMAB
     Dosage: 1550 MG
     Route: 042
     Dates: start: 20230317, end: 20230317
  33. MAGROLIMAB [Suspect]
     Active Substance: MAGROLIMAB
     Dosage: 1550 MG
     Route: 042
     Dates: start: 20230327, end: 20230327
  34. MAGROLIMAB [Suspect]
     Active Substance: MAGROLIMAB
     Dosage: 1550 MG
     Route: 042
     Dates: start: 20230403, end: 20230403
  35. MAGROLIMAB [Suspect]
     Active Substance: MAGROLIMAB
     Dosage: 1550 MG
     Route: 042
     Dates: start: 20230417, end: 20230417
  36. MAGROLIMAB [Suspect]
     Active Substance: MAGROLIMAB
     Dosage: 1550 MG
     Route: 042
     Dates: start: 20230602, end: 20230602
  37. MAGROLIMAB [Suspect]
     Active Substance: MAGROLIMAB
     Dosage: 1550 MG
     Route: 042
     Dates: start: 20230606, end: 20230606
  38. MAGROLIMAB [Suspect]
     Active Substance: MAGROLIMAB
     Dosage: 1550 MG
     Route: 042
     Dates: start: 20230613, end: 20230613
  39. MAGROLIMAB [Suspect]
     Active Substance: MAGROLIMAB
     Dosage: 1550 MG
     Route: 042
     Dates: start: 20230619, end: 20230619
  40. MAGROLIMAB [Suspect]
     Active Substance: MAGROLIMAB
     Dosage: 1550 MG
     Route: 042
     Dates: start: 20230703, end: 20230703
  41. MAGROLIMAB [Suspect]
     Active Substance: MAGROLIMAB
     Dosage: 1550 MG
     Route: 042
     Dates: start: 20230731, end: 20230731
  42. MAGROLIMAB [Suspect]
     Active Substance: MAGROLIMAB
     Indication: Acute myeloid leukaemia
     Dosage: 52 MG
     Route: 042
     Dates: start: 20230224, end: 20230224
  43. MAGROLIMAB [Suspect]
     Active Substance: MAGROLIMAB
     Dosage: 52 MG
     Route: 042
     Dates: start: 20230227, end: 20230227
  44. MAGROLIMAB [Suspect]
     Active Substance: MAGROLIMAB
     Dosage: 52 MG
     Route: 042
     Dates: start: 20230523, end: 20230523
  45. MAGROLIMAB [Suspect]
     Active Substance: MAGROLIMAB
     Dosage: 52 MG
     Route: 042
     Dates: start: 20230526, end: 20230526
  46. MAGROLIMAB [Suspect]
     Active Substance: MAGROLIMAB
     Dosage: 775 MG
     Route: 042
     Dates: start: 20230303, end: 20230303
  47. MAGROLIMAB [Suspect]
     Active Substance: MAGROLIMAB
     Dosage: 775 MG
     Route: 042
     Dates: start: 20230530, end: 20230530
  48. MAGROLIMAB [Suspect]
     Active Substance: MAGROLIMAB
     Dosage: 1 DOSE UNSPECIFIED
     Route: 042
     Dates: start: 20230410, end: 20230410
  49. VENETOCLAX [Suspect]
     Active Substance: VENETOCLAX
     Dosage: 10 MG
     Route: 048
     Dates: start: 20230224, end: 20230224
  50. VENETOCLAX [Suspect]
     Active Substance: VENETOCLAX
     Dosage: 10 MG
     Route: 048
     Dates: start: 20230523, end: 20230523
  51. VENETOCLAX [Suspect]
     Active Substance: VENETOCLAX
     Dosage: 20 MG
     Route: 048
     Dates: start: 20230225, end: 20230225
  52. VENETOCLAX [Suspect]
     Active Substance: VENETOCLAX
     Dosage: 20 MG
     Route: 048
     Dates: start: 20230524, end: 20230524
  53. VENETOCLAX [Suspect]
     Active Substance: VENETOCLAX
     Dosage: 20 MG
     Route: 048
     Dates: start: 20230808, end: 20230808
  54. VENETOCLAX [Suspect]
     Active Substance: VENETOCLAX
     Dosage: 50 MG
     Route: 048
     Dates: start: 20230525, end: 20230525
  55. VENETOCLAX [Suspect]
     Active Substance: VENETOCLAX
     Dosage: 50 MG
     Route: 048
     Dates: start: 20230809, end: 20230809
  56. VENETOCLAX [Suspect]
     Active Substance: VENETOCLAX
     Indication: Acute myeloid leukaemia
     Dosage: 70 MG
     Route: 048
     Dates: start: 20230621
  57. VENETOCLAX [Suspect]
     Active Substance: VENETOCLAX
     Dosage: 70 MG
     Route: 048
     Dates: start: 20230227, end: 20230227
  58. VENETOCLAX [Suspect]
     Active Substance: VENETOCLAX
     Dosage: 70 MG
     Route: 048
     Dates: start: 20230403, end: 20230410
  59. VENETOCLAX [Suspect]
     Active Substance: VENETOCLAX
     Dosage: 70 MG
     Route: 048
     Dates: start: 20230417, end: 20230423
  60. VENETOCLAX [Suspect]
     Active Substance: VENETOCLAX
     Dosage: 70 MG
     Route: 048
     Dates: start: 20230526, end: 20230612
  61. VENETOCLAX [Suspect]
     Active Substance: VENETOCLAX
     Dosage: 70 MG
     Route: 048
     Dates: start: 20230810, end: 20230810
  62. VENETOCLAX [Suspect]
     Active Substance: VENETOCLAX
     Dosage: UNK MG
     Route: 048
     Dates: start: 20230327, end: 20230402
  63. VENETOCLAX [Suspect]
     Active Substance: VENETOCLAX
     Dosage: UNK MG
     Route: 048
     Dates: start: 20230411, end: 20230416
  64. VENETOCLAX [Suspect]
     Active Substance: VENETOCLAX
     Dosage: UNK MG
     Route: 048
     Dates: start: 20230620, end: 20230710
  65. CALCIUM CARBONATE [Concomitant]
     Active Substance: CALCIUM CARBONATE
     Indication: Osteopenia
     Dosage: UNK
     Route: 048
     Dates: start: 20150602
  66. CHOLECALCIFEROL [Concomitant]
     Active Substance: CHOLECALCIFEROL
     Indication: Osteopenia
     Dosage: UNK
     Route: 048
     Dates: start: 20150602
  67. DIPYRIDAMOLE [Concomitant]
     Active Substance: DIPYRIDAMOLE
     Indication: Product used for unknown indication
     Route: 065
  68. EPILIM [Concomitant]
     Active Substance: VALPROATE SODIUM
     Indication: Epilepsy
     Dosage: UNK
     Route: 048
     Dates: start: 1978
  69. LOPERAMIDE HYDROCHLORIDE [Concomitant]
     Active Substance: LOPERAMIDE HYDROCHLORIDE
     Indication: Diarrhoea
     Dosage: UNK
     Route: 048
     Dates: start: 20230222
  70. LORATADINE [Concomitant]
     Active Substance: LORATADINE
     Indication: Prophylaxis
     Dosage: 10 MG
     Route: 048
     Dates: start: 20230224
  71. MAGNESIUM ASPARTATE [Concomitant]
     Active Substance: MAGNESIUM ASPARTATE
     Indication: Hypomagnesaemia
     Dosage: UNK
     Route: 048
     Dates: start: 2022
  72. MELATONIN [Concomitant]
     Active Substance: MELATONIN
     Indication: Insomnia
     Dosage: UNK
     Route: 048
     Dates: start: 20230219
  73. METOCLOPRAMIDE [Concomitant]
     Active Substance: METOCLOPRAMIDE
     Indication: Nausea
     Dosage: UNK
     Route: 048
     Dates: start: 20230225
  74. ONDANSETRON [Concomitant]
     Active Substance: ONDANSETRON
     Indication: Prophylaxis
     Dosage: 4 MG
     Route: 042
     Dates: start: 20230224
  75. ACETAMINOPHEN [Concomitant]
     Active Substance: ACETAMINOPHEN
     Indication: Prophylaxis
     Dosage: 1000 MG
     Route: 048
     Dates: start: 20230224
  76. ACETAMINOPHEN [Concomitant]
     Active Substance: ACETAMINOPHEN
     Dosage: 1000 MG
     Route: 048
     Dates: start: 20230224, end: 20230904
  77. POSACONAZOLE [Concomitant]
     Active Substance: POSACONAZOLE
     Indication: Prophylaxis
     Dosage: UNK
     Route: 048
     Dates: start: 20230206
  78. SODIUM BICARBONATE [Concomitant]
     Active Substance: SODIUM BICARBONATE
     Indication: Prophylaxis
     Dosage: UNK
     Route: 048
     Dates: start: 20230206
  79. PIPERACILLIN SODIUM\TAZOBACTAM SODIUM [Concomitant]
     Active Substance: PIPERACILLIN SODIUM\TAZOBACTAM SODIUM
     Indication: Febrile neutropenia
     Dosage: UNK
     Route: 065
     Dates: start: 20230911
  80. PIPERACILLIN SODIUM\TAZOBACTAM SODIUM [Concomitant]
     Active Substance: PIPERACILLIN SODIUM\TAZOBACTAM SODIUM
     Dosage: UNK
     Route: 065
     Dates: start: 20230706, end: 20230712
  81. PIPERACILLIN SODIUM\TAZOBACTAM SODIUM [Concomitant]
     Active Substance: PIPERACILLIN SODIUM\TAZOBACTAM SODIUM
     Dosage: UNK
     Route: 065
     Dates: start: 20230706
  82. VANCOMYCIN [Concomitant]
     Active Substance: VANCOMYCIN
     Indication: Febrile neutropenia
     Dosage: UNK
     Route: 042
     Dates: start: 20230706, end: 20230706
  83. VANCOMYCIN [Concomitant]
     Active Substance: VANCOMYCIN
     Dosage: UNK
     Route: 042
     Dates: start: 20230706, end: 20230708

REACTIONS (4)
  - Acute kidney injury [Recovered/Resolved]
  - Bacteraemia [Recovered/Resolved]
  - Seizure [Recovered/Resolved]
  - Febrile neutropenia [Recovered/Resolved]

NARRATIVE: CASE EVENT DATE: 20230706
